FAERS Safety Report 10714625 (Version 10)
Quarter: 2016Q1

REPORT INFORMATION
  Report Type: Spontaneous
  Country: US (occurrence: US)
  Receive Date: 20150115
  Receipt Date: 20160307
  Transmission Date: 20160525
  Serious: Yes (Other)
  Sender: FDA-Public Use
  Company Number: US-009507513-1501USA005247

PATIENT
  Sex: Female
  Weight: 78.5 kg

DRUGS (4)
  1. FOSAMAX [Suspect]
     Active Substance: ALENDRONATE SODIUM
     Indication: OSTEOPOROSIS PROPHYLAXIS
     Dosage: 5 MG, QD
     Route: 048
     Dates: start: 19980209, end: 20010115
  2. FOSAMAX [Suspect]
     Active Substance: ALENDRONATE SODIUM
     Indication: OSTEOPENIA
     Dosage: 70 MG, QW
     Route: 048
     Dates: start: 20001129, end: 20110401
  3. FOSAMAX [Suspect]
     Active Substance: ALENDRONATE SODIUM
     Dosage: 40 MG, QW
     Route: 048
     Dates: start: 200101
  4. ALENDRONATE SODIUM. [Suspect]
     Active Substance: ALENDRONATE SODIUM
     Indication: OSTEOPENIA
     Dosage: 70 MG, QW
     Route: 048
     Dates: start: 20080912

REACTIONS (18)
  - Femur fracture [Recovered/Resolved]
  - Low turnover osteopathy [Unknown]
  - Osteoarthritis [Unknown]
  - Urinary tract infection [Unknown]
  - Vitamin B12 deficiency [Unknown]
  - Bursitis [Unknown]
  - Femur fracture [Recovered/Resolved]
  - Infection [Unknown]
  - Skin abrasion [Unknown]
  - Hypertension [Unknown]
  - Oral surgery [Unknown]
  - Femur fracture [Unknown]
  - Oophorectomy [Unknown]
  - Urinary tract infection [Unknown]
  - Gingivectomy [Unknown]
  - Breast conserving surgery [Unknown]
  - Hypercholesterolaemia [Unknown]
  - Hypothyroidism [Unknown]

NARRATIVE: CASE EVENT DATE: 2006
